FAERS Safety Report 4286114-8 (Version None)
Quarter: 2004Q1

REPORT INFORMATION
  Report Type: 
  Country: None (occurrence: None)
  Receive Date: 20040204
  Receipt Date: 20040204
  Transmission Date: 20041129
  Serious: Yes (Congenital Anomaly)
  Sender: FDA-Public Use
  Company Number: None

PATIENT
  Sex: Male
  Weight: 90.7194 kg

DRUGS (1)
  1. PAXIL CR [Suspect]
     Dosage: 12.5 -25 DAILY ORAL
     Route: 048
     Dates: start: 20031015, end: 20040131

REACTIONS (1)
  - DRUG WITHDRAWAL SYNDROME [None]
